FAERS Safety Report 19273151 (Version 1)
Quarter: 2021Q2

REPORT INFORMATION
  Report Type: Spontaneous
  Country: TW (occurrence: TW)
  Receive Date: 20210518
  Receipt Date: 20210518
  Transmission Date: 20210717
  Serious: Yes (Other)
  Sender: FDA-Public Use
  Company Number: TW-VALIDUS PHARMACEUTICALS LLC-TW-2021VAL001190

PATIENT

DRUGS (1)
  1. FUROSEMIDE. [Suspect]
     Active Substance: FUROSEMIDE
     Indication: BODY DYSMORPHIC DISORDER
     Dosage: 120 MG, QD
     Route: 048

REACTIONS (9)
  - Metabolic alkalosis [Recovered/Resolved]
  - Condition aggravated [Recovered/Resolved]
  - Hypokalaemia [Recovered/Resolved]
  - Muscle spasms [Recovered/Resolved]
  - Nephrocalcinosis [Not Recovered/Not Resolved]
  - Drug abuse [Recovered/Resolved]
  - Thirst [Recovered/Resolved]
  - Paraesthesia [Recovered/Resolved]
  - Muscular weakness [Recovered/Resolved]
